FAERS Safety Report 9547599 (Version 2)
Quarter: 2013Q4

REPORT INFORMATION
  Report Type: Spontaneous
  Country: US (occurrence: None)
  Receive Date: 20130920
  Receipt Date: 20131002
  Transmission Date: 20140711
  Serious: Yes (Hospitalization, Other)
  Sender: FDA-Public Use
  Company Number: ALK-2013-001951

PATIENT
  Age: 56 None
  Sex: Female

DRUGS (3)
  1. VIVITROL [Suspect]
     Indication: DRUG DEPENDENCE
     Route: 030
     Dates: start: 20130830
  2. NORVASC (AMLODIPINE BESILATE) [Concomitant]
  3. SUBOXONE (BUPRENORPHINE HYDROCHLORIDE, NALOXONE HYDROCHLORIDE)? [Concomitant]

REACTIONS (8)
  - Feeling abnormal [None]
  - Loss of consciousness [None]
  - Coma [None]
  - Drug withdrawal syndrome [None]
  - Pyelonephritis [None]
  - Drug withdrawal syndrome [None]
  - Tachycardia [None]
  - Agitation [None]
